FAERS Safety Report 7067955-0 (Version None)
Quarter: 2010Q4

REPORT INFORMATION
  Report Type: 
  Country: None (occurrence: None)
  Receive Date: 20101028
  Receipt Date: 20101022
  Transmission Date: 20110411
  Serious: Yes (Other)
  Sender: FDA-Public Use
  Company Number: GB-ALLERGAN-1011370US

PATIENT
  Sex: Male

DRUGS (8)
  1. PRED FORTE [Suspect]
     Indication: INFLAMMATION
     Dosage: 1 GTT, QID
     Route: 047
  2. PRED FORTE [Suspect]
     Indication: POSTOPERATIVE CARE
  3. VALPROATE SODIUM [Concomitant]
     Indication: BIPOLAR DISORDER
     Dosage: 500 MG, UNKNOWN
     Route: 048
  4. OLANZAPINE [Concomitant]
     Indication: BIPOLAR DISORDER
     Dosage: 20 MG, UNKNOWN
     Route: 048
  5. SERETIDE [Concomitant]
     Indication: CHRONIC OBSTRUCTIVE PULMONARY DISEASE
     Dosage: 500 A?G, BID
     Route: 055
  6. SALBUTAMOL [Concomitant]
     Indication: CHRONIC OBSTRUCTIVE PULMONARY DISEASE
     Dosage: 200 A?G, QID
     Route: 055
  7. SIMVASTATIN [Concomitant]
     Indication: PROPHYLAXIS
     Dosage: 40 MG, QD
     Route: 048
  8. RAMIPRIL [Concomitant]
     Indication: PROPHYLAXIS
     Dosage: 40 MG, QD
     Route: 048

REACTIONS (1)
  - PSYCHOTIC DISORDER [None]
